FAERS Safety Report 5376492-0 (Version None)
Quarter: 2007Q3

REPORT INFORMATION
  Report Type: 
  Country: None (occurrence: None)
  Receive Date: 20070702
  Receipt Date: 20070625
  Transmission Date: 20080115
  Serious: Yes (Hospitalization, Other)
  Sender: FDA-Public Use
  Company Number: BR-PFIZER INC-A112699

PATIENT
  Sex: Female

DRUGS (4)
  1. SERTRALINE [Suspect]
     Indication: DEPRESSION
     Dosage: DAILY DOSE:50MG-FREQ:DAILY
     Route: 048
  2. DIAZEPAM [Concomitant]
     Route: 065
  3. BROMAZEPAM [Concomitant]
  4. PARACETAMOL [Concomitant]

REACTIONS (3)
  - CEREBRAL HAEMANGIOMA [None]
  - HEPATITIS C [None]
  - SYNCOPE [None]
